FAERS Safety Report 6144837-X (Version None)
Quarter: 2009Q2

REPORT INFORMATION
  Report Type: 
  Country: None (occurrence: None)
  Receive Date: 20090401
  Receipt Date: 20090401
  Transmission Date: 20091009
  Serious: No
  Sender: FDA-Public Use
  Company Number: None

PATIENT
  Age: 40 Year
  Sex: Male
  Weight: 83.01 kg

DRUGS (4)
  1. FLUOXETINE [Suspect]
     Indication: DEPRESSION
     Dosage: 40 MG EVERYDAY PO
     Route: 048
     Dates: start: 20090123, end: 20090309
  2. FLUOXETINE [Suspect]
     Indication: INSOMNIA
     Dosage: 40 MG EVERYDAY PO
     Route: 048
     Dates: start: 20090123, end: 20090309
  3. FLUOXETINE [Suspect]
     Indication: POST-TRAUMATIC STRESS DISORDER
     Dosage: 40 MG EVERYDAY PO
     Route: 048
     Dates: start: 20090123, end: 20090309
  4. ACETAMINOPHEN/HYDOROCODONE [Suspect]
     Indication: PAIN
     Dosage: 1 TAB BID PO
     Route: 048
     Dates: start: 20040131

REACTIONS (14)
  - AGITATION [None]
  - ANXIETY [None]
  - DRUG INTERACTION [None]
  - DYSKINESIA [None]
  - FLUSHING [None]
  - HALLUCINATIONS, MIXED [None]
  - HYPERVENTILATION [None]
  - INSOMNIA [None]
  - PRURITUS [None]
  - SEROTONIN SYNDROME [None]
  - TACHYCARDIA [None]
  - TACHYPNOEA [None]
  - TARDIVE DYSKINESIA [None]
  - URTICARIA [None]
